FAERS Safety Report 21951057 (Version 2)
Quarter: 2023Q1

REPORT INFORMATION
  Report Type: Spontaneous
  Country: US (occurrence: US)
  Receive Date: 20230203
  Receipt Date: 20230314
  Transmission Date: 20230417
  Serious: Yes (Hospitalization, Other)
  Sender: FDA-Public Use
  Company Number: US-PFIZER INC-PV202300021276

PATIENT
  Age: 66 Year
  Sex: Female
  Weight: 86.168 kg

DRUGS (1)
  1. XELJANZ XR [Suspect]
     Active Substance: TOFACITINIB CITRATE
     Indication: Rheumatoid arthritis
     Dosage: 11 MG

REACTIONS (6)
  - Kidney infection [Recovered/Resolved]
  - Drug intolerance [Unknown]
  - Bacterial infection [Unknown]
  - Urinary tract infection [Unknown]
  - Cystitis [Unknown]
  - Sepsis [Unknown]

NARRATIVE: CASE EVENT DATE: 20221118
